FAERS Safety Report 4855520-2 (Version None)
Quarter: 2005Q4

REPORT INFORMATION
  Report Type: 
  Country: None (occurrence: None)
  Receive Date: 20051216
  Receipt Date: 20051206
  Transmission Date: 20060501
  Serious: Yes (Hospitalization, Disabling)
  Sender: FDA-Public Use
  Company Number: GB-BRISTOL-MYERS SQUIBB COMPANY-13204821

PATIENT
  Age: 57 Year
  Sex: Female
  Weight: 100 kg

DRUGS (4)
  1. TRIAMCINOLONE [Suspect]
     Indication: BACK PAIN
     Route: 008
     Dates: start: 20051114, end: 20051114
  2. LIDOCAINE [Suspect]
     Indication: BACK PAIN
     Route: 008
     Dates: start: 20051114, end: 20051114
  3. THYROXINE [Concomitant]
     Indication: HYPOTHYROIDISM
     Route: 048
  4. GABAPENTIN [Concomitant]
     Indication: NEURALGIA
     Route: 048
     Dates: start: 20030101

REACTIONS (1)
  - NEUROPATHY [None]
